FAERS Safety Report 15882845 (Version 2)
Quarter: 2019Q2

REPORT INFORMATION
  Report Type: Spontaneous
  Country: DE (occurrence: DE)
  Receive Date: 20190129
  Receipt Date: 20190514
  Transmission Date: 20190711
  Serious: Yes (Hospitalization, Other)
  Sender: FDA-Public Use
  Company Number: DE-AUROBINDO-AUR-APL-2019-004427

PATIENT

DRUGS (6)
  1. AMIODARONE [Suspect]
     Active Substance: AMIODARONE
     Indication: SUPRAVENTRICULAR TACHYCARDIA
  2. ADENOSINE. [Suspect]
     Active Substance: ADENOSINE
     Indication: SUPRAVENTRICULAR TACHYCARDIA
     Dosage: 0.1 MILLIGRAM/KILOGRAM, TOTAL
     Route: 065
  3. ACEBUTOLOL [Concomitant]
     Active Substance: ACEBUTOLOL
     Indication: SUPRAVENTRICULAR TACHYCARDIA
     Dosage: UNK
     Route: 065
  4. AMIODARONE [Suspect]
     Active Substance: AMIODARONE
     Indication: TACHYARRHYTHMIA
     Dosage: 5 MILLIGRAM/KILOGRAM
     Route: 065
  5. AMIODARONE [Suspect]
     Active Substance: AMIODARONE
     Indication: ATRIAL FIBRILLATION
  6. ADENOSINE. [Suspect]
     Active Substance: ADENOSINE
     Indication: CARDIOVERSION
     Dosage: 0.05 MILLIGRAM/KILOGRAM, TOTAL
     Route: 040

REACTIONS (9)
  - Supraventricular tachycardia [Recovered/Resolved]
  - Chest pain [Recovered/Resolved]
  - Cardiac failure [Unknown]
  - Tachycardia [Recovered/Resolved]
  - Blood pressure abnormal [Recovered/Resolved]
  - Haemodynamic instability [Recovered/Resolved]
  - Condition aggravated [Recovered/Resolved]
  - Atrial fibrillation [Recovered/Resolved]
  - Drug ineffective [Unknown]
